FAERS Safety Report 14582667 (Version 4)
Quarter: 2020Q1

REPORT INFORMATION
  Report Type: Spontaneous
  Country: NL (occurrence: NL)
  Receive Date: 20180228
  Receipt Date: 20200217
  Transmission Date: 20200409
  Serious: Yes (Other)
  Sender: FDA-Public Use
  Company Number: NL-TEVA-2018-NL-861615

PATIENT
  Age: 65 Year
  Sex: Female
  Weight: 61 kg

DRUGS (7)
  1. ACETYLSALICYLZUUR CARDIO 80 MG [Concomitant]
     Dosage: 80 MILLIGRAM DAILY; 1DD1
  2. LEVOCETIRIZINE FILMOMHULDE TABLET, 5 MG (MILLIGRAM) [Suspect]
     Active Substance: LEVOCETIRIZINE
     Indication: SEASONAL ALLERGY
     Dosage: 2.5 MILLIGRAM DAILY; HALF TABLET PER DAY
     Route: 065
     Dates: start: 201705, end: 20170913
  3. LOSEC MUIS 20 MG [Concomitant]
     Dosage: 20 MILLIGRAM DAILY; 1DD1
  4. OSIPINE 10 MG [Concomitant]
     Dosage: 10 MILLIGRAM DAILY; 1DD1
  5. EZETROL 10 MG [Concomitant]
     Active Substance: EZETIMIBE
     Dosage: 10 MILLIGRAM DAILY; 1DD1
  6. CRESTOR [Concomitant]
     Active Substance: ROSUVASTATIN CALCIUM
     Dosage: 2.5 MILLIGRAM DAILY; 1DD 0,5 TABLET
  7. DIOVAN [Concomitant]
     Active Substance: VALSARTAN
     Dosage: 160 MILLIGRAM DAILY; 1DD1

REACTIONS (1)
  - Arrhythmia [Recovered/Resolved]

NARRATIVE: CASE EVENT DATE: 20170613
